FAERS Safety Report 7926632-1 (Version None)
Quarter: 2011Q4

REPORT INFORMATION
  Report Type: 
  Country: None (occurrence: None)
  Receive Date: 20111118
  Receipt Date: 20111110
  Transmission Date: 20120403
  Serious: No
  Sender: FDA-Public Use
  Company Number: US-BIOGENIDEC-2011BI043260

PATIENT
  Sex: Female

DRUGS (3)
  1. AVONEX [Suspect]
     Route: 030
     Dates: start: 20001122, end: 20030101
  2. AVONEX [Suspect]
     Indication: MULTIPLE SCLEROSIS
     Route: 030
     Dates: start: 20030101, end: 20100101
  3. TYSABRI [Concomitant]
     Indication: MULTIPLE SCLEROSIS
     Route: 042
     Dates: start: 20100820, end: 20110801

REACTIONS (6)
  - MULTIPLE SCLEROSIS [None]
  - UPPER LIMB FRACTURE [None]
  - JOINT RANGE OF MOTION DECREASED [None]
  - BALANCE DISORDER [None]
  - FALL [None]
  - PAIN IN EXTREMITY [None]
